FAERS Safety Report 4308330-9 (Version None)
Quarter: 2004Q1

REPORT INFORMATION
  Report Type: 
  Country: None (occurrence: None)
  Receive Date: 20040301
  Receipt Date: 20040226
  Transmission Date: 20041129
  Serious: Yes (Other)
  Sender: FDA-Public Use
  Company Number: GB-BRISTOL-MYERS SQUIBB COMPANY-12517025

PATIENT

DRUGS (6)
  1. COAPROVEL TABS 300MG/12.5MG [Suspect]
     Indication: HYPERTENSION
     Route: 048
     Dates: start: 20030901, end: 20031224
  2. CIPRALEX [Suspect]
     Indication: DEPRESSION
     Route: 048
     Dates: start: 20031217, end: 20031224
  3. TIMOLOL MALEATE [Concomitant]
     Dosage: COMMENT: ^OTHER DRUGS LISTED WERE STARTED WELL BEFORE 12/2003 AND ARE CONTINUING THERAPIES.^
     Route: 047
  4. ATENOLOL [Concomitant]
     Dosage: COMMENT: ^OTHER DRUGS LISTED WERE STARTED WELL BEFORE 12/2003 AND ARE CONTINUING THERAPIES.^
  5. LATANOPROST [Concomitant]
     Dosage: COMMENT: ^OTHER DRUGS LISTED WERE STARTED WELL BEFORE 12/2003 AND ARE CONTINUING THERAPIES.^
  6. ZOPLICONE [Concomitant]
     Dosage: COMMENT: ^OTHER DRUGS LISTED WERE STARTED WELL BEFORE 12/2003 AND ARE CONTINUING THERAPIES.^

REACTIONS (2)
  - DEPRESSED LEVEL OF CONSCIOUSNESS [None]
  - HYPONATRAEMIA [None]
